FAERS Safety Report 15653042 (Version 3)
Quarter: 2018Q4

REPORT INFORMATION
  Report Type: Spontaneous
  Country: US (occurrence: US)
  Receive Date: 20181123
  Receipt Date: 20181123
  Transmission Date: 20190205
  Serious: No
  Sender: FDA-Public Use
  Company Number: US-NOVOPROD-609714

PATIENT
  Age: 68 Year
  Sex: Male

DRUGS (6)
  1. NOVOLOG [Suspect]
     Active Substance: INSULIN ASPART
     Indication: TYPE 1 DIABETES MELLITUS
     Dosage: 1 UNIT FOR EVERY 15 CARBS
     Route: 058
  2. NOVOLOG [Suspect]
     Active Substance: INSULIN ASPART
     Dosage: 5 U, SINGLE
     Route: 058
     Dates: start: 20180701, end: 20180701
  3. NOVOLOG [Suspect]
     Active Substance: INSULIN ASPART
     Dosage: 5 U, SINGLE
     Route: 058
     Dates: start: 20180701, end: 20180701
  4. NOVOLOG [Suspect]
     Active Substance: INSULIN ASPART
     Indication: TYPE 1 DIABETES MELLITUS
     Dosage: 1 UNIT FOR EVERY 15 CARBS
     Route: 058
  5. NOVOLOG [Suspect]
     Active Substance: INSULIN ASPART
     Indication: TYPE 1 DIABETES MELLITUS
     Dosage: 1 UNIT FOR EVERY 15 CARBS
     Route: 058
  6. NOVOLOG [Suspect]
     Active Substance: INSULIN ASPART
     Dosage: 5 U, SINGLE
     Route: 058
     Dates: start: 20180701, end: 20180701

REACTIONS (3)
  - Fear [Unknown]
  - Device failure [Recovered/Resolved]
  - Blood glucose increased [Recovered/Resolved]

NARRATIVE: CASE EVENT DATE: 2018
